FAERS Safety Report 23090952 (Version 2)
Quarter: 2023Q4

REPORT INFORMATION
  Report Type: Spontaneous
  Country: IT (occurrence: IT)
  Receive Date: 20231020
  Receipt Date: 20231204
  Transmission Date: 20240110
  Serious: Yes (Hospitalization, Other)
  Sender: FDA-Public Use
  Company Number: IT-AMERICAN REGENT INC-2023002441

PATIENT
  Age: 35 Year
  Sex: Female

DRUGS (2)
  1. FERINJECT [Suspect]
     Active Substance: FERRIC CARBOXYMALTOSE
     Indication: Anaemia
     Dosage: 1 VIAL (500 MILLIGRAM) (10 ML VIAL), SINGLE
     Dates: start: 20231011, end: 20231011
  2. FERINJECT [Suspect]
     Active Substance: FERRIC CARBOXYMALTOSE
     Indication: Anaemia of pregnancy

REACTIONS (7)
  - Respiratory failure [Recovered/Resolved]
  - Hypertonia [Recovered/Resolved]
  - Salivary hypersecretion [Recovered/Resolved]
  - Maternal exposure during pregnancy [Unknown]
  - Face oedema [Recovered/Resolved]
  - Flushing [Recovered/Resolved]
  - Angioedema [Recovered/Resolved]

NARRATIVE: CASE EVENT DATE: 20231011
